FAERS Safety Report 21568280 (Version 2)
Quarter: 2022Q4

REPORT INFORMATION
  Report Type: Spontaneous
  Country: US (occurrence: US)
  Receive Date: 20221108
  Receipt Date: 20221110
  Transmission Date: 20230113
  Serious: No
  Sender: FDA-Public Use
  Company Number: US-PFIZER INC-202201279719

PATIENT
  Age: 64 Year
  Sex: Female

DRUGS (1)
  1. IBRANCE [Suspect]
     Active Substance: PALBOCICLIB
     Dosage: FOR 21 DAYS

REACTIONS (3)
  - Onychalgia [Unknown]
  - Nail discolouration [Unknown]
  - Skin discolouration [Unknown]

NARRATIVE: CASE EVENT DATE: 20221101
